FAERS Safety Report 9738479 (Version 4)
Quarter: 2014Q2

REPORT INFORMATION
  Report Type: Report from Study
  Country: BR (occurrence: BR)
  Receive Date: 20131208
  Receipt Date: 20140528
  Transmission Date: 20141212
  Serious: Yes (Hospitalization)
  Sender: FDA-Public Use
  Company Number: BR-US-EMD SERONO, INC.-7238954

PATIENT
  Age: 52 Year
  Sex: Female

DRUGS (7)
  1. REBIF [Suspect]
     Indication: RELAPSING-REMITTING MULTIPLE SCLEROSIS
     Route: 058
     Dates: start: 20090601
  2. OXYBUTYNIN [Concomitant]
     Indication: URINARY INCONTINENCE
  3. PLASIL                             /00041901/ [Concomitant]
     Indication: ABDOMINAL DISCOMFORT
  4. TYLENOL                            /00020001/ [Concomitant]
     Indication: PROPHYLAXIS
  5. CALCIUM D                          /01272001/ [Concomitant]
     Indication: PRODUCT USED FOR UNKNOWN INDICATION
  6. VITAMIN E                          /00110501/ [Concomitant]
     Indication: PRODUCT USED FOR UNKNOWN INDICATION
     Dosage: 400MH
  7. ALENDRONATE SODIUM [Concomitant]
     Indication: PRODUCT USED FOR UNKNOWN INDICATION

REACTIONS (7)
  - Ankle fracture [Recovering/Resolving]
  - Fall [Recovering/Resolving]
  - Muscular weakness [Recovering/Resolving]
  - Arthralgia [Recovering/Resolving]
  - Osteoporosis [Unknown]
  - Multiple sclerosis relapse [Recovering/Resolving]
  - Spinal disorder [Recovering/Resolving]
